FAERS Safety Report 9781063 (Version 6)
Quarter: 2017Q1

REPORT INFORMATION
  Report Type: Report from Study
  Country: JP (occurrence: JP)
  Receive Date: 20131224
  Receipt Date: 20170201
  Transmission Date: 20170429
  Serious: Yes (Other)
  Sender: FDA-Public Use
  Company Number: JP-ASTELLAS-2013JP012672

PATIENT
  Age: 30 Year
  Sex: Female
  Weight: 51 kg

DRUGS (30)
  1. PREDONINE [Concomitant]
     Active Substance: PREDNISOLONE
     Route: 048
     Dates: start: 20110910, end: 20120209
  2. BENET [Concomitant]
     Active Substance: RISEDRONATE SODIUM
     Indication: PROPHYLAXIS
     Route: 048
     Dates: end: 20120516
  3. TACROLIMUS. [Suspect]
     Active Substance: TACROLIMUS
     Route: 048
     Dates: start: 20091218, end: 20100114
  4. PREDONINE [Concomitant]
     Active Substance: PREDNISOLONE
     Route: 048
     Dates: start: 20110520, end: 20110616
  5. PERSANTINE [Concomitant]
     Active Substance: DIPYRIDAMOLE
     Indication: PROPHYLAXIS
     Route: 048
     Dates: end: 20121219
  6. PREDONINE [Concomitant]
     Active Substance: PREDNISOLONE
     Route: 048
     Dates: start: 20090827, end: 20091022
  7. PREDONINE [Concomitant]
     Active Substance: PREDNISOLONE
     Route: 048
     Dates: start: 20091120, end: 20101216
  8. PERSANTINE [Concomitant]
     Active Substance: DIPYRIDAMOLE
     Indication: LUPUS NEPHRITIS
     Dosage: 150 MG, ONCE DAILY, AFTER BREAKFAST
     Route: 048
  9. LIPITOR [Concomitant]
     Active Substance: ATORVASTATIN CALCIUM
     Indication: HYPERLIPIDAEMIA
     Route: 048
     Dates: start: 20090105, end: 20090625
  10. MICARDIS [Concomitant]
     Active Substance: TELMISARTAN
     Route: 065
     Dates: end: 20150709
  11. GASTER [Suspect]
     Active Substance: FAMOTIDINE
     Indication: PROPHYLAXIS
     Route: 048
     Dates: end: 20130108
  12. PREDONINE [Concomitant]
     Active Substance: PREDNISOLONE
     Dosage: 17.5MG-20MG, EVERY OTHER DAY
     Route: 048
     Dates: start: 20090202, end: 20090429
  13. PREDONINE [Concomitant]
     Active Substance: PREDNISOLONE
     Route: 048
     Dates: start: 20101217, end: 20110421
  14. TACROLIMUS. [Suspect]
     Active Substance: TACROLIMUS
     Indication: LUPUS NEPHRITIS
     Route: 048
     Dates: start: 20081031, end: 20091217
  15. GASTER [Suspect]
     Active Substance: FAMOTIDINE
     Route: 048
     Dates: start: 20130731, end: 201509
  16. PREDONINE [Concomitant]
     Active Substance: PREDNISOLONE
     Indication: LUPUS NEPHRITIS
     Route: 048
     Dates: end: 20090202
  17. PREDONINE [Concomitant]
     Active Substance: PREDNISOLONE
     Dosage: 20MG-17.5MG, EVERY OTHER DAY
     Route: 048
     Dates: start: 20110422, end: 20110519
  18. PREDONINE [Concomitant]
     Active Substance: PREDNISOLONE
     Route: 048
     Dates: start: 20120209
  19. MICARDIS [Concomitant]
     Active Substance: TELMISARTAN
     Dosage: UNK UNK, UNKNOWN FREQ.
     Route: 065
  20. PREDONINE [Concomitant]
     Active Substance: PREDNISOLONE
     Dosage: 17.5MG-15MG, EVERY OTHER DAY
     Route: 048
     Dates: start: 20090528, end: 20090624
  21. PREDONINE [Concomitant]
     Active Substance: PREDNISOLONE
     Route: 048
     Dates: start: 20110617, end: 20110714
  22. PREDONINE [Concomitant]
     Active Substance: PREDNISOLONE
     Dosage: 15MG-12.5MG, EVERY OTHER DAY
     Route: 048
     Dates: start: 20110715, end: 20110909
  23. MICARDIS [Concomitant]
     Active Substance: TELMISARTAN
     Indication: LUPUS NEPHRITIS
     Route: 065
     Dates: start: 20140716, end: 20141104
  24. MICARDIS [Concomitant]
     Active Substance: TELMISARTAN
     Dosage: 40 MG, ONCE DAILY, AFTER BREAKFAST
     Route: 065
     Dates: start: 20141105
  25. TACROLIMUS. [Suspect]
     Active Substance: TACROLIMUS
     Route: 048
     Dates: start: 20100115, end: 20110324
  26. TACROLIMUS. [Suspect]
     Active Substance: TACROLIMUS
     Route: 048
     Dates: start: 20110325
  27. PREDONINE [Concomitant]
     Active Substance: PREDNISOLONE
     Route: 048
     Dates: start: 20090625, end: 20090722
  28. PREDONINE [Concomitant]
     Active Substance: PREDNISOLONE
     Dosage: 15MG-12.5MG, EVERY OTHER DAY
     Route: 048
     Dates: start: 20090723, end: 20090826
  29. PREDONINE [Concomitant]
     Active Substance: PREDNISOLONE
     Dosage: 12.5MG-10MG, EVERY OTHER DAY
     Route: 048
     Dates: start: 20091023, end: 20091119
  30. PREDONINE [Concomitant]
     Active Substance: PREDNISOLONE
     Route: 048
     Dates: start: 20090430, end: 20090527

REACTIONS (4)
  - Premature labour [Unknown]
  - Pre-eclampsia [Recovering/Resolving]
  - Maternal exposure during pregnancy [Unknown]
  - Placental insufficiency [Recovered/Resolved]

NARRATIVE: CASE EVENT DATE: 20130206
